FAERS Safety Report 6921633-4 (Version None)
Quarter: 2010Q3

REPORT INFORMATION
  Report Type: 
  Country: None (occurrence: None)
  Receive Date: 20100812
  Receipt Date: 20100802
  Transmission Date: 20110219
  Serious: Yes (Hospitalization, Disabling, Other)
  Sender: FDA-Public Use
  Company Number: US-MERCK-1006USA02771

PATIENT
  Age: 51 Year
  Sex: Female

DRUGS (4)
  1. FOSAMAX [Suspect]
     Indication: OSTEOPOROSIS
     Route: 048
     Dates: start: 19970707, end: 20090307
  2. FOSAMAX [Suspect]
     Indication: HIP FRACTURE
     Route: 048
     Dates: start: 19970707, end: 20090307
  3. ALENDRONATE SODIUM [Suspect]
     Route: 048
     Dates: start: 20080501, end: 20090301
  4. FOSAMAX PLUS D [Suspect]
     Route: 048

REACTIONS (7)
  - BACK DISORDER [None]
  - FEMUR FRACTURE [None]
  - HAND FRACTURE [None]
  - LOW TURNOVER OSTEOPATHY [None]
  - OSTEOPOROSIS [None]
  - STRESS FRACTURE [None]
  - SYSTEMIC LUPUS ERYTHEMATOSUS [None]
